FAERS Safety Report 20608776 (Version 2)
Quarter: 2022Q1

REPORT INFORMATION
  Report Type: Spontaneous
  Country: CN (occurrence: None)
  Receive Date: 20220317
  Receipt Date: 20220321
  Transmission Date: 20220424
  Serious: Yes (Life-Threatening, Hospitalization, Other)
  Sender: FDA-Public Use
  Company Number: 2022A114242

PATIENT
  Age: 66 Year
  Sex: Male

DRUGS (1)
  1. QUETIAPINE [Suspect]
     Active Substance: QUETIAPINE
     Indication: Delirium
     Dosage: 20 TABLETS (200 MG)
     Route: 048

REACTIONS (3)
  - Overdose [Recovering/Resolving]
  - Acute lung injury [Recovering/Resolving]
  - Off label use [Unknown]
